FAERS Safety Report 20707311 (Version 1)
Quarter: 2022Q2

REPORT INFORMATION
  Report Type: Spontaneous
  Country: US (occurrence: US)
  Receive Date: 20220413
  Receipt Date: 20220413
  Transmission Date: 20220721
  Serious: No
  Sender: FDA-Public Use
  Company Number: US-BRISTOL-MYERS SQUIBB COMPANY-2022-016453

PATIENT
  Sex: Female

DRUGS (1)
  1. POMALYST [Suspect]
     Active Substance: POMALIDOMIDE
     Indication: Plasma cell myeloma
     Dosage: ONE CAPSULE BY MOUTH ONCE DAILY ON AN EMPTY STOMACH FOR 21 DAYS, REST FOR 7 DAYS
     Route: 048

REACTIONS (4)
  - Dizziness [Unknown]
  - Tremor [Unknown]
  - Oedema peripheral [Unknown]
  - Balance disorder [Unknown]
